FAERS Safety Report 22875940 (Version 2)
Quarter: 2023Q4

REPORT INFORMATION
  Report Type: Report from Study
  Country: US (occurrence: US)
  Receive Date: 20230829
  Receipt Date: 20231009
  Transmission Date: 20240109
  Serious: Yes (Death, Hospitalization)
  Sender: FDA-Public Use
  Company Number: US-ABBVIE-5382934

PATIENT
  Age: 81 Year
  Sex: Male

DRUGS (4)
  1. VENCLEXTA [Suspect]
     Active Substance: VENETOCLAX
     Indication: Chronic lymphocytic leukaemia
     Dosage: WEEK 2
     Route: 048
     Dates: start: 202308, end: 202308
  2. VENCLEXTA [Suspect]
     Active Substance: VENETOCLAX
     Indication: Chronic lymphocytic leukaemia
     Dosage: WEEK 3
     Route: 048
     Dates: start: 202308, end: 202308
  3. VENCLEXTA [Suspect]
     Active Substance: VENETOCLAX
     Indication: Chronic lymphocytic leukaemia
     Dosage: WEEK 1
     Route: 048
     Dates: start: 20230801, end: 202308
  4. VENCLEXTA [Suspect]
     Active Substance: VENETOCLAX
     Indication: Chronic lymphocytic leukaemia
     Dosage: WEEK 4
     Route: 048
     Dates: start: 202308, end: 202308

REACTIONS (5)
  - Red blood cell count decreased [Fatal]
  - Cardiac arrest [Fatal]
  - Septic shock [Fatal]
  - Brain injury [Fatal]
  - Cardiac haemolytic anaemia [Fatal]

NARRATIVE: CASE EVENT DATE: 20230801
